FAERS Safety Report 16161447 (Version 1)
Quarter: 2019Q2

REPORT INFORMATION
  Report Type: Spontaneous
  Country: GB (occurrence: GB)
  Receive Date: 20190405
  Receipt Date: 20190405
  Transmission Date: 20190711
  Serious: Yes (Other)
  Sender: FDA-Public Use
  Company Number: GB-CELLTRION INC.-2019GB019985

PATIENT

DRUGS (1)
  1. REMSIMA [Suspect]
     Active Substance: INFLIXIMAB
     Indication: PRODUCT USE IN UNAPPROVED INDICATION
     Dosage: 5 MG/KG (17ML)
     Route: 065
     Dates: start: 20190121

REACTIONS (3)
  - Dyspnoea [Unknown]
  - Flushing [Unknown]
  - Cyanosis [Unknown]

NARRATIVE: CASE EVENT DATE: 20190121
